FAERS Safety Report 11613705 (Version 2)
Quarter: 2015Q4

REPORT INFORMATION
  Report Type: Spontaneous
  Country: US (occurrence: US)
  Receive Date: 20151008
  Receipt Date: 20151109
  Transmission Date: 20160304
  Serious: Yes (Death, Hospitalization, Other)
  Sender: FDA-Public Use
  Company Number: US-ASTELLAS-2015US036671

PATIENT
  Sex: Male

DRUGS (1)
  1. PROGRAF [Suspect]
     Active Substance: TACROLIMUS\TACROLIMUS ANHYDROUS
     Indication: LIVER TRANSPLANT
     Dosage: 02 CAPS (1MG) IN THE MORNING AND 1 CAPSULE (0.5MG) IN THE EVENING
     Route: 048
     Dates: start: 20150603, end: 20150922

REACTIONS (1)
  - Hepatocellular carcinoma [Fatal]
